FAERS Safety Report 23818086 (Version 2)
Quarter: 2024Q2

REPORT INFORMATION
  Report Type: Spontaneous
  Country: US (occurrence: US)
  Receive Date: 20240506
  Receipt Date: 20240618
  Transmission Date: 20240716
  Serious: Yes (Hospitalization, Other)
  Sender: FDA-Public Use
  Company Number: US-SA-SAC20240425001288

PATIENT
  Age: 27 Year
  Sex: Male

DRUGS (1)
  1. TZIELD [Suspect]
     Active Substance: TEPLIZUMAB-MZWV
     Indication: Diabetes prophylaxis
     Dosage: UNK
     Route: 041
     Dates: start: 20240415

REACTIONS (3)
  - Throat tightness [Unknown]
  - Throat irritation [Unknown]
  - Rash [Unknown]

NARRATIVE: CASE EVENT DATE: 20240423
